FAERS Safety Report 24373991 (Version 1)
Quarter: 2024Q3

REPORT INFORMATION
  Report Type: Spontaneous
  Country: US (occurrence: US)
  Receive Date: 20240927
  Receipt Date: 20240927
  Transmission Date: 20241017
  Serious: No
  Sender: ABBVIE
  Company Number: US-ABBVIE-5936851

PATIENT
  Sex: Female

DRUGS (1)
  1. UBRELVY [Suspect]
     Active Substance: UBROGEPANT
     Indication: Product used for unknown indication
     Route: 048
     Dates: start: 2023

REACTIONS (4)
  - Gastrointestinal disorder [Unknown]
  - Abdominal pain lower [Unknown]
  - Vaginal haemorrhage [Unknown]
  - Imaging procedure abnormal [Unknown]

NARRATIVE: CASE EVENT DATE: 20240901
